FAERS Safety Report 25595433 (Version 1)
Quarter: 2025Q3

REPORT INFORMATION
  Report Type: Spontaneous
  Country: US (occurrence: US)
  Receive Date: 20250723
  Receipt Date: 20250723
  Transmission Date: 20251021
  Serious: No
  Sender: HIKMA
  Company Number: US-HIKMA PHARMACEUTICALS USA INC.-US-H14001-25-03328

PATIENT

DRUGS (1)
  1. CODEINE [Suspect]
     Active Substance: CODEINE
     Indication: Product used for unknown indication
     Route: 065

REACTIONS (2)
  - Swelling [Unknown]
  - Headache [Unknown]
